FAERS Safety Report 12754564 (Version 2)
Quarter: 2017Q3

REPORT INFORMATION
  Report Type: Spontaneous
  Country: US (occurrence: US)
  Receive Date: 20160915
  Receipt Date: 20170914
  Transmission Date: 20171127
  Serious: Yes (Other)
  Sender: FDA-Public Use
  Company Number: US-ASTELLAS-2016US021742

PATIENT
  Sex: Male

DRUGS (2)
  1. MORPHINE SULFATE. [Concomitant]
     Active Substance: MORPHINE SULFATE
     Indication: PRODUCT USED FOR UNKNOWN INDICATION
     Dosage: UNK UNK, UNKNOWN FREQ.
     Route: 065
  2. XTANDI [Suspect]
     Active Substance: ENZALUTAMIDE
     Indication: PROSTATE CANCER
     Route: 048
     Dates: start: 20160420

REACTIONS (8)
  - Constipation [Unknown]
  - Hyperhidrosis [Unknown]
  - Product physical issue [Unknown]
  - Drug dose omission [Unknown]
  - Back pain [Unknown]
  - Dysphagia [Unknown]
  - Asthenia [Unknown]
  - Malignant neoplasm progression [Unknown]
